FAERS Safety Report 23228593 (Version 2)
Quarter: 2024Q1

REPORT INFORMATION
  Report Type: Spontaneous
  Country: US (occurrence: US)
  Receive Date: 20231125
  Receipt Date: 20240214
  Transmission Date: 20240410
  Serious: No
  Sender: FDA-Public Use
  Company Number: US-BAYER-2023A164603

PATIENT
  Age: 15 Year
  Sex: Male

DRUGS (1)
  1. KOVALTRY [Suspect]
     Active Substance: ANTIHEMOPHILIC FACTOR, HUMAN RECOMBINANT
     Indication: Factor VIII deficiency
     Dosage: 3 TIMES A WEEK
     Route: 042
     Dates: start: 202201

REACTIONS (2)
  - Myalgia [None]
  - Extra dose administered [None]

NARRATIVE: CASE EVENT DATE: 20231113
